FAERS Safety Report 17044712 (Version 5)
Quarter: 2020Q3

REPORT INFORMATION
  Report Type: Report from Study
  Country: US (occurrence: US)
  Receive Date: 20191118
  Receipt Date: 20200918
  Transmission Date: 20201102
  Serious: Yes (Other)
  Sender: FDA-Public Use
  Company Number: NVSC2019US039378

PATIENT
  Sex: Female

DRUGS (1)
  1. COSENTYX [Suspect]
     Active Substance: SECUKINUMAB
     Indication: PRODUCT USED FOR UNKNOWN INDICATION
     Dosage: UNK
     Route: 065

REACTIONS (6)
  - Breast cancer [Unknown]
  - Bone pain [Unknown]
  - Psoriatic arthropathy [Unknown]
  - Road traffic accident [Unknown]
  - Intervertebral disc protrusion [Unknown]
  - Malaise [Unknown]
